FAERS Safety Report 8835449 (Version 1)
Quarter: 2012Q4

REPORT INFORMATION
  Report Type: 
  Country: US (occurrence: US)
  Receive Date: 20121011
  Receipt Date: 20121011
  Transmission Date: 20130627
  Serious: Yes (Other)
  Sender: FDA-Public Use
  Company Number: PHEH2012US019838

PATIENT
  Sex: Male

DRUGS (7)
  1. DIOVAN [Suspect]
  2. LIPITOR [Concomitant]
  3. KEPPRA [Concomitant]
  4. BACLOFEN [Concomitant]
  5. CLOPIDOGREL [Concomitant]
  6. ZOLOFT [Concomitant]
  7. PROTONIX [Concomitant]

REACTIONS (2)
  - Cerebrovascular accident [Unknown]
  - Convulsion [Unknown]
